FAERS Safety Report 4709404-0 (Version None)
Quarter: 2005Q3

REPORT INFORMATION
  Report Type: 
  Country: None (occurrence: None)
  Receive Date: 20050705
  Receipt Date: 20050620
  Transmission Date: 20060218
  Serious: Yes (Hospitalization, Other)
  Sender: FDA-Public Use
  Company Number: 2005BI011875

PATIENT
  Age: 45 Year
  Sex: Female
  Weight: 79.3795 kg

DRUGS (9)
  1. AVONEX [Suspect]
     Indication: MULTIPLE SCLEROSIS
     Dosage: 30 UG; QW; IM
     Route: 030
     Dates: start: 20040101
  2. PREVACID [Concomitant]
  3. CARDIZEM LA [Concomitant]
  4. TOPROL-XL [Concomitant]
  5. LISINOPRIL [Concomitant]
  6. EFFEXOR [Concomitant]
  7. FLUOXETINE [Concomitant]
  8. TRILEPTAL [Concomitant]
  9. FLOVENT [Concomitant]

REACTIONS (8)
  - ADRENAL NEOPLASM [None]
  - ANXIETY [None]
  - CONDITION AGGRAVATED [None]
  - MULTIPLE SCLEROSIS [None]
  - OEDEMA [None]
  - OSTEOPOROSIS [None]
  - SPINAL CORD COMPRESSION [None]
  - WEIGHT INCREASED [None]
